FAERS Safety Report 24980185 (Version 1)
Quarter: 2025Q1

REPORT INFORMATION
  Report Type: Spontaneous
  Country: US (occurrence: None)
  Receive Date: 20250214
  Receipt Date: 20250214
  Transmission Date: 20250409
  Serious: Yes (Hospitalization)
  Sender: FDA-CTU
  Company Number: None

PATIENT
  Age: 65 Year
  Sex: Female
  Weight: 81 kg

DRUGS (1)
  1. FOSAMAX [Suspect]
     Active Substance: ALENDRONATE SODIUM
     Indication: Osteopenia
     Dates: start: 20220601, end: 20241010

REACTIONS (3)
  - Lower limb fracture [None]
  - Fracture [None]
  - Osteonecrosis of jaw [None]

NARRATIVE: CASE EVENT DATE: 20241009
